FAERS Safety Report 24162567 (Version 1)
Quarter: 2024Q3

REPORT INFORMATION
  Report Type: Report from Study
  Country: US (occurrence: US)
  Receive Date: 20240801
  Receipt Date: 20240801
  Transmission Date: 20241016
  Serious: Yes (Hospitalization, Other)
  Sender: JAZZ
  Company Number: US-JAZZ PHARMACEUTICALS-2024-US-001415

PATIENT
  Sex: Female

DRUGS (27)
  1. SODIUM OXYBATE [Suspect]
     Active Substance: SODIUM OXYBATE
     Indication: Narcolepsy
  2. SODIUM OXYBATE [Suspect]
     Active Substance: SODIUM OXYBATE
     Indication: Cataplexy
  3. SODIUM OXYBATE [Suspect]
     Active Substance: SODIUM OXYBATE
     Indication: Somnolence
  4. SEROQUEL [Suspect]
     Active Substance: QUETIAPINE FUMARATE
     Indication: Product used for unknown indication
  5. MORPHINE [Suspect]
     Active Substance: MORPHINE
     Indication: Product used for unknown indication
  6. TIROSINT-SOL [Suspect]
     Active Substance: LEVOTHYROXINE SODIUM
     Indication: Product used for unknown indication
     Dosage: UNK
     Dates: start: 20231111
  7. CRANBERRY CONCENTRATE [ASCORBIC ACID;VACCINIUM MACROCARPON FRUIT] [Concomitant]
     Indication: Product used for unknown indication
     Dosage: UNK
     Dates: start: 20151201
  8. FLUCONAZOLE [Concomitant]
     Active Substance: FLUCONAZOLE
     Indication: Product used for unknown indication
     Dosage: UNK
     Dates: start: 20180301
  9. KETOROLAC [Concomitant]
     Active Substance: KETOROLAC TROMETHAMINE
     Indication: Product used for unknown indication
     Dosage: UNK
     Dates: start: 20190506
  10. ONDANSETRON HYDROCHLORIDE [Concomitant]
     Active Substance: ONDANSETRON HYDROCHLORIDE
     Indication: Product used for unknown indication
     Dosage: UNK
     Dates: start: 20190506
  11. SODIUM CHLORIDE [Concomitant]
     Active Substance: SODIUM CHLORIDE
     Indication: Product used for unknown indication
     Dosage: UNK
     Dates: start: 20201214
  12. MECLIZINE [Concomitant]
     Active Substance: MECLIZINE HYDROCHLORIDE
     Indication: Product used for unknown indication
     Dosage: CAPLET
     Dates: start: 20210301
  13. CYANOCOBALAMIN [Concomitant]
     Active Substance: CYANOCOBALAMIN
     Indication: Product used for unknown indication
     Dosage: UNK
     Dates: start: 20210201
  14. ALBUTEROL SULFATE [Concomitant]
     Active Substance: ALBUTEROL SULFATE
     Indication: Product used for unknown indication
     Dosage: UNK
     Dates: start: 20221122
  15. TELMISARTAN AND HYDROCHLOROTHIAZIDE [Concomitant]
     Active Substance: HYDROCHLOROTHIAZIDE\TELMISARTAN
     Indication: Product used for unknown indication
     Dosage: UNK
     Dates: start: 20231027
  16. ADDERALL [Concomitant]
     Active Substance: AMPHETAMINE ASPARTATE\AMPHETAMINE SULFATE\DEXTROAMPHETAMINE SACCHARATE\DEXTROAMPHETAMINE SULFATE
     Indication: Product used for unknown indication
     Dosage: 20 MILLIGRAM, CAPSULE
     Dates: start: 20240414
  17. ADDERALL [Concomitant]
     Active Substance: AMPHETAMINE ASPARTATE\AMPHETAMINE SULFATE\DEXTROAMPHETAMINE SACCHARATE\DEXTROAMPHETAMINE SULFATE
     Dosage: 10 MILLIGRAM, TABLET
     Dates: start: 20240411
  18. ARMOUR THYROID [Concomitant]
     Active Substance: THYROID, PORCINE
     Indication: Product used for unknown indication
     Dosage: UNK
     Dates: start: 20240701
  19. ATENOLOL [Concomitant]
     Active Substance: ATENOLOL
     Indication: Product used for unknown indication
  20. COPAXONE [Concomitant]
     Active Substance: GLATIRAMER ACETATE
     Indication: Product used for unknown indication
  21. AUBAGIO [Concomitant]
     Active Substance: TERIFLUNOMIDE
     Indication: Product used for unknown indication
  22. PREBIOTICS NOS;PROBIOTICS NOS [Concomitant]
     Indication: Product used for unknown indication
  23. VRAYLAR [Concomitant]
     Active Substance: CARIPRAZINE
     Indication: Product used for unknown indication
  24. MAGNESIUM [Concomitant]
     Active Substance: MAGNESIUM
     Indication: Product used for unknown indication
  25. POTASSIUM [Concomitant]
     Active Substance: POTASSIUM
     Indication: Product used for unknown indication
  26. TORADOL [Concomitant]
     Active Substance: KETOROLAC TROMETHAMINE
     Indication: Product used for unknown indication
  27. CYTOMEL [Concomitant]
     Active Substance: LIOTHYRONINE SODIUM
     Indication: Product used for unknown indication

REACTIONS (8)
  - Skin cancer [Unknown]
  - Hospitalisation [Unknown]
  - Hallucination [Unknown]
  - Vitamin D decreased [Unknown]
  - Unevaluable event [Unknown]
  - Osteoporosis [Unknown]
  - Brain fog [Unknown]
  - Product administration interrupted [Unknown]
